FAERS Safety Report 10583893 (Version 3)
Quarter: 2014Q4

REPORT INFORMATION
  Report Type: Spontaneous
  Country: AU (occurrence: None)
  Receive Date: 20141112
  Receipt Date: 20141204
  Transmission Date: 20150529
  Serious: Yes (Hospitalization)
  Sender: FDA-Public Use
  Company Number: 201410073

PATIENT
  Age: 65 Year
  Sex: Male

DRUGS (1)
  1. XIAFLEX [Suspect]
     Active Substance: COLLAGENASE CLOSTRIDIUM HISTOLYTICUM
     Indication: DUPUYTREN^S CONTRACTURE
     Dosage: 1 IN 1 D, INTRALESIONAL
     Dates: start: 20141001, end: 20141001

REACTIONS (8)
  - Chest pain [None]
  - Injection site pain [None]
  - Lethargy [None]
  - Hypersensitivity [None]
  - Blood pressure decreased [None]
  - Contusion [None]
  - Axillary pain [None]
  - Vertigo [None]

NARRATIVE: CASE EVENT DATE: 20141025
